FAERS Safety Report 9894355 (Version 6)
Quarter: 2014Q2

REPORT INFORMATION
  Report Type: Spontaneous
  Country: US (occurrence: US)
  Receive Date: 20140213
  Receipt Date: 20140522
  Transmission Date: 20141212
  Serious: Yes (Hospitalization, Other)
  Sender: FDA-Public Use
  Company Number: US-TEVA-462295USA

PATIENT
  Sex: Female

DRUGS (1)
  1. ALENDRONIC ACID [Suspect]
     Indication: OSTEOPOROSIS
     Dosage: 10 MILLIGRAM DAILY; ^HAS BEEN ON IT FOR AWHILE^
     Route: 048
     Dates: start: 201310, end: 20140206

REACTIONS (8)
  - Oesophageal ulcer [Recovering/Resolving]
  - Cellulitis [Recovering/Resolving]
  - Cellulitis [Unknown]
  - Oesophageal stenosis [Unknown]
  - Hiatus hernia [Unknown]
  - Throat irritation [Unknown]
  - Inflammation [Unknown]
  - Mouth ulceration [Unknown]
